FAERS Safety Report 12284840 (Version 2)
Quarter: 2016Q3

REPORT INFORMATION
  Report Type: Spontaneous
  Country: US (occurrence: US)
  Receive Date: 20160420
  Receipt Date: 20160826
  Transmission Date: 20161109
  Serious: Yes (Other)
  Sender: FDA-Public Use
  Company Number: US-TEVA-648213USA

PATIENT
  Age: 57 Year
  Sex: Female

DRUGS (13)
  1. ZECUITY [Suspect]
     Active Substance: SUMATRIPTAN SUCCINATE
     Route: 062
  2. CLONIDINE. [Concomitant]
     Active Substance: CLONIDINE
  3. SYNTHROID [Concomitant]
     Active Substance: LEVOTHYROXINE SODIUM
  4. PROZAC [Concomitant]
     Active Substance: FLUOXETINE HYDROCHLORIDE
  5. IMITREX [Concomitant]
     Active Substance: SUMATRIPTAN SUCCINATE
  6. SEROQUEL [Concomitant]
     Active Substance: QUETIAPINE FUMARATE
  7. POTASSIUM CHLORIDE. [Concomitant]
     Active Substance: POTASSIUM CHLORIDE
  8. ARTANE [Concomitant]
     Active Substance: TRIHEXYPHENIDYL HYDROCHLORIDE
  9. ATIVAN [Concomitant]
     Active Substance: LORAZEPAM
  10. LISINOPRIL. [Concomitant]
     Active Substance: LISINOPRIL
  11. LASIX [Concomitant]
     Active Substance: FUROSEMIDE
  12. TOPAMAX [Concomitant]
     Active Substance: TOPIRAMATE
  13. NORVASC [Concomitant]
     Active Substance: AMLODIPINE BESYLATE

REACTIONS (9)
  - Product physical issue [Recovered/Resolved]
  - Application site discolouration [Recovered/Resolved]
  - Application site discomfort [Recovered/Resolved]
  - Application site burn [Recovered/Resolved]
  - Product leakage [Unknown]
  - Incorrect drug administration duration [Recovered/Resolved]
  - Application site irritation [Recovered/Resolved]
  - Application site pain [Recovered/Resolved]
  - Application site erythema [Recovered/Resolved]

NARRATIVE: CASE EVENT DATE: 20160319
